FAERS Safety Report 8077713-6 (Version None)
Quarter: 2012Q1

REPORT INFORMATION
  Report Type: 
  Country: None (occurrence: None)
  Receive Date: 20120127
  Receipt Date: 20120118
  Transmission Date: 20120608
  Serious: Yes (Death, Hospitalization)
  Sender: FDA-Public Use
  Company Number: JP-BRISTOL-MYERS SQUIBB COMPANY-16362220

PATIENT
  Age: 72 Year
  Sex: Female
  Weight: 41 kg

DRUGS (18)
  1. PREDNISOLONE SODIUM SUCCINATE INJ [Suspect]
     Indication: RHEUMATOID ARTHRITIS
     Dates: start: 20110913, end: 20111004
  2. CELECOXIB [Concomitant]
     Indication: RHEUMATOID ARTHRITIS
  3. ALENDRONATE SODIUM [Concomitant]
     Indication: OSTEOPOROSIS
  4. DEPAS [Concomitant]
     Indication: INSOMNIA
  5. SULFAMETHOXAZOLE [Suspect]
     Indication: PNEUMOCYSTIS JIROVECI PNEUMONIA
     Dates: start: 20110905
  6. TACROLIMUS [Concomitant]
     Indication: RHEUMATOID ARTHRITIS
  7. GASTROM [Concomitant]
     Indication: GASTRITIS
  8. GASMOTIN [Concomitant]
     Indication: GASTRITIS
  9. ALPRAZOLAM [Concomitant]
     Indication: ANXIETY
  10. PLETAL [Concomitant]
     Indication: PROPHYLAXIS
  11. LANSOPRAZOLE [Concomitant]
     Indication: GASTRITIS
  12. ORENCIA [Suspect]
     Indication: RHEUMATOID ARTHRITIS
     Dosage: 24MAY11,07JUN11
     Route: 042
     Dates: start: 20110510
  13. PREDNISOLONE [Suspect]
     Indication: RHEUMATOID ARTHRITIS
     Dosage: 1 DF : 5-15MG,BEFORE ABATACEPT FIRST ADMINISTRATION-12SEP11,13SEP11-04OCT11;40MG
     Route: 048
     Dates: end: 20110912
  14. BACTRIM [Suspect]
     Indication: PNEUMOCYSTIS JIROVECI PNEUMONIA
     Dates: start: 20110822
  15. LIVALO [Concomitant]
     Indication: HYPERLIPIDAEMIA
  16. CYANOCOBALAMIN [Concomitant]
     Indication: STOMATITIS
  17. METHOTREXATE [Suspect]
     Indication: RHEUMATOID ARTHRITIS
     Dates: start: 20040101, end: 20110920
  18. MAGMITT [Concomitant]
     Indication: CONSTIPATION

REACTIONS (4)
  - PNEUMOCYSTIS JIROVECI PNEUMONIA [None]
  - DISSEMINATED INTRAVASCULAR COAGULATION [None]
  - THROMBOTIC THROMBOCYTOPENIC PURPURA [None]
  - CRYPTOCOCCOSIS [None]
